FAERS Safety Report 26052159 (Version 2)
Quarter: 2025Q4

REPORT INFORMATION
  Report Type: Report from Study
  Country: KR (occurrence: KR)
  Receive Date: 20251117
  Receipt Date: 20251203
  Transmission Date: 20260118
  Serious: No
  Sender: CSL BEHRING
  Company Number: KR-BEH-2025224138

PATIENT
  Age: 16 Year
  Sex: Male

DRUGS (14)
  1. AFSTYLA ANTIHEMOPHILIC FACTOR (RECOMBINANT), SINGLE CHAIN [Suspect]
     Active Substance: LONOCTOCOG ALFA
     Indication: Factor VIII deficiency
     Dosage: 2212 IU
     Route: 042
     Dates: start: 20240920
  2. AFSTYLA ANTIHEMOPHILIC FACTOR (RECOMBINANT), SINGLE CHAIN [Suspect]
     Active Substance: LONOCTOCOG ALFA
     Indication: Factor VIII deficiency
     Dosage: 2212 IU
     Route: 042
     Dates: start: 20240920
  3. AFSTYLA ANTIHEMOPHILIC FACTOR (RECOMBINANT), SINGLE CHAIN [Suspect]
     Active Substance: LONOCTOCOG ALFA
     Indication: Prophylaxis
     Dosage: 2212 IU
     Route: 042
     Dates: start: 20241023
  4. AFSTYLA ANTIHEMOPHILIC FACTOR (RECOMBINANT), SINGLE CHAIN [Suspect]
     Active Substance: LONOCTOCOG ALFA
     Indication: Prophylaxis
     Dosage: 2212 IU
     Route: 042
     Dates: start: 20241023
  5. AFSTYLA ANTIHEMOPHILIC FACTOR (RECOMBINANT), SINGLE CHAIN [Suspect]
     Active Substance: LONOCTOCOG ALFA
     Indication: Prophylaxis
     Dosage: 2212 IU
     Route: 042
     Dates: start: 20241114
  6. AFSTYLA ANTIHEMOPHILIC FACTOR (RECOMBINANT), SINGLE CHAIN [Suspect]
     Active Substance: LONOCTOCOG ALFA
     Indication: Prophylaxis
     Dosage: 2212 IU
     Route: 042
     Dates: start: 20241114
  7. AFSTYLA ANTIHEMOPHILIC FACTOR (RECOMBINANT), SINGLE CHAIN [Suspect]
     Active Substance: LONOCTOCOG ALFA
     Indication: Haemorrhage
     Dosage: 2212 IU
     Route: 042
     Dates: start: 20241111
  8. AFSTYLA ANTIHEMOPHILIC FACTOR (RECOMBINANT), SINGLE CHAIN [Suspect]
     Active Substance: LONOCTOCOG ALFA
     Indication: Haemorrhage
     Dosage: 2212 IU
     Route: 042
     Dates: start: 20241111
  9. AFSTYLA ANTIHEMOPHILIC FACTOR (RECOMBINANT), SINGLE CHAIN [Suspect]
     Active Substance: LONOCTOCOG ALFA
     Dosage: 2212 IU
     Route: 042
     Dates: start: 20250115
  10. AFSTYLA ANTIHEMOPHILIC FACTOR (RECOMBINANT), SINGLE CHAIN [Suspect]
     Active Substance: LONOCTOCOG ALFA
     Dosage: 2212 IU
     Route: 042
     Dates: start: 20250115
  11. AFSTYLA ANTIHEMOPHILIC FACTOR (RECOMBINANT), SINGLE CHAIN [Suspect]
     Active Substance: LONOCTOCOG ALFA
     Dosage: 2212 IU
     Route: 042
     Dates: start: 20250217
  12. AFSTYLA ANTIHEMOPHILIC FACTOR (RECOMBINANT), SINGLE CHAIN [Suspect]
     Active Substance: LONOCTOCOG ALFA
     Dosage: 2212 IU
     Route: 042
     Dates: start: 20250217
  13. TRANSAMIN [Concomitant]
     Active Substance: TRANEXAMIC ACID
     Indication: Factor VIII deficiency
     Dosage: 250 MG, PRN
     Route: 048
     Dates: start: 20200122
  14. XYZAL [Concomitant]
     Active Substance: LEVOCETIRIZINE DIHYDROCHLORIDE
     Indication: Rhinitis allergic
     Dosage: 1 DF, PRN
     Route: 048
     Dates: start: 20230317

REACTIONS (1)
  - Extremity contracture [Not Recovered/Not Resolved]

NARRATIVE: CASE EVENT DATE: 20241111
